FAERS Safety Report 22174483 (Version 3)
Quarter: 2024Q1

REPORT INFORMATION
  Report Type: Spontaneous
  Country: IT (occurrence: IT)
  Receive Date: 20230405
  Receipt Date: 20240131
  Transmission Date: 20240410
  Serious: Yes (Life-Threatening, Hospitalization, Other)
  Sender: FDA-Public Use
  Company Number: IT-CELGENE-ITA-20220103946

PATIENT
  Age: 51 Year
  Sex: Male

DRUGS (36)
  1. LENALIDOMIDE [Suspect]
     Active Substance: LENALIDOMIDE
     Indication: Plasma cell myeloma
     Dosage: 25 MILLIGRAM
     Route: 048
     Dates: start: 20211027, end: 20220111
  2. CARFILZOMIB [Suspect]
     Active Substance: CARFILZOMIB
     Indication: Plasma cell myeloma
     Dosage: 56 MILLIGRAM/SQ. METER
     Route: 041
     Dates: start: 20211102, end: 20220104
  3. DEXAMETHASONE [Suspect]
     Active Substance: DEXAMETHASONE
     Indication: Plasma cell myeloma
     Dosage: 40 MILLIGRAM
     Route: 048
     Dates: start: 20211026, end: 20220104
  4. ISATUXIMAB [Suspect]
     Active Substance: ISATUXIMAB
     Indication: Plasma cell myeloma
     Dosage: 10 MILLIGRAM/KILOGRAM
     Route: 065
     Dates: start: 20211026
  5. ISATUXIMAB [Suspect]
     Active Substance: ISATUXIMAB
     Dosage: 10 MILLIGRAM/KILOGRAM
     Route: 065
     Dates: start: 20211123
  6. Covid-19 vaccine [Concomitant]
     Indication: Prophylaxis
     Dosage: UNK (PFIZER FIRST DOSE)
     Route: 065
     Dates: start: 20210414, end: 20210414
  7. Covid-19 vaccine [Concomitant]
     Dosage: UNK (PFIZER SECOND DOSE)
     Route: 065
     Dates: start: 20210505, end: 20210505
  8. Covid-19 vaccine [Concomitant]
     Dosage: UNK (PFIZER THIRD DOSE)
     Route: 065
     Dates: start: 20210922, end: 20210922
  9. GRANULOCYTE COLONY-STIMULATING FACTOR NOS [Concomitant]
     Active Substance: GRANULOCYTE COLONY-STIMULATING FACTOR NOS
     Indication: Cytopenia
     Dosage: UNK
     Route: 065
     Dates: start: 20220605
  10. HYDROCORTISONE SODIUM SUCCINATE [Concomitant]
     Active Substance: HYDROCORTISONE SODIUM SUCCINATE
     Indication: Respiratory distress
     Dosage: UNK
     Route: 065
     Dates: start: 20211026
  11. FUROSEMIDE [Concomitant]
     Active Substance: FUROSEMIDE
     Indication: Respiratory distress
     Dosage: UNK, ONCE A DAY
     Route: 041
     Dates: start: 20211026, end: 20211026
  12. FUROSEMIDE [Concomitant]
     Active Substance: FUROSEMIDE
     Dosage: 25 MILLIGRAM
     Route: 041
     Dates: start: 20211116
  13. FAMOTIDINE [Concomitant]
     Active Substance: FAMOTIDINE
     Indication: Respiratory distress
     Dosage: UNK
     Route: 065
     Dates: start: 20211123
  14. LEVOFLOXACIN [Concomitant]
     Active Substance: LEVOFLOXACIN
     Indication: Pyrexia
     Dosage: UNK
     Route: 065
     Dates: start: 20220627
  15. MONTELUKAST [Concomitant]
     Active Substance: MONTELUKAST SODIUM
     Indication: Prophylaxis
     Dosage: UNK
     Route: 065
     Dates: start: 20211025
  16. MORPHINE [Concomitant]
     Active Substance: MORPHINE
     Indication: Mucosal inflammation
     Dosage: UNK
     Route: 065
     Dates: start: 20220615
  17. OXYGEN [Concomitant]
     Active Substance: OXYGEN
     Indication: Respiratory distress
     Dosage: UNK
     Route: 065
     Dates: start: 20211126, end: 20211126
  18. OXYGEN [Concomitant]
     Active Substance: OXYGEN
     Dosage: 2 LITER (PER MINUTE AS NEEDED)
     Route: 065
     Dates: start: 20220113, end: 20220125
  19. NIRMATRELVIR\RITONAVIR [Concomitant]
     Active Substance: NIRMATRELVIR\RITONAVIR
     Indication: COVID-19
     Dosage: UNK
     Route: 065
     Dates: start: 20220930
  20. ACETAMINOPHEN [Concomitant]
     Active Substance: ACETAMINOPHEN
     Indication: Respiratory distress
     Dosage: UNK
     Route: 065
     Dates: start: 20211026, end: 20211026
  21. ACETAMINOPHEN [Concomitant]
     Active Substance: ACETAMINOPHEN
     Indication: Premedication
     Dosage: UNK
     Route: 065
     Dates: start: 20211123
  22. TRIMETON [Concomitant]
     Active Substance: CHLORPHENIRAMINE MALEATE
     Indication: Respiratory distress
     Dosage: UNK
     Route: 065
     Dates: start: 20211026, end: 20211026
  23. TRIMETON [Concomitant]
     Active Substance: CHLORPHENIRAMINE MALEATE
     Dosage: UNK
     Route: 065
     Dates: start: 20211123
  24. COMIRNATY (TOZINAMERAN) [Concomitant]
     Active Substance: TOZINAMERAN
     Indication: Prophylaxis
     Dosage: 1ST VACCINATION
     Route: 065
     Dates: start: 20210414, end: 20210414
  25. COMIRNATY (TOZINAMERAN) [Concomitant]
     Active Substance: TOZINAMERAN
     Dosage: 2ND VACCINATION
     Route: 065
     Dates: start: 20210505, end: 20210505
  26. COMIRNATY (TOZINAMERAN) [Concomitant]
     Active Substance: TOZINAMERAN
     Dosage: 3RD VACCINATION
     Route: 065
     Dates: start: 20210922, end: 20210922
  27. COMIRNATY (TOZINAMERAN) [Concomitant]
     Active Substance: TOZINAMERAN
     Dosage: 4TH VACCINATION
     Route: 065
     Dates: start: 20220825, end: 20220825
  28. COMIRNATY (TOZINAMERAN) [Concomitant]
     Active Substance: TOZINAMERAN
     Dosage: 5TH VACCINATION
     Route: 065
     Dates: start: 20230324
  29. BACTRIM [Concomitant]
     Active Substance: SULFAMETHOXAZOLE\TRIMETHOPRIM
     Indication: Prophylaxis
     Dosage: UNK
     Route: 065
     Dates: start: 20211126
  30. CHLORPHENIRAMINE MALEATE [Concomitant]
     Active Substance: CHLORPHENIRAMINE MALEATE
     Indication: Premedication
     Dosage: UNK
     Route: 065
     Dates: start: 20211123, end: 20211123
  31. CHLORPHENIRAMINE MALEATE [Concomitant]
     Active Substance: CHLORPHENIRAMINE MALEATE
     Dosage: UNK
     Route: 065
     Dates: start: 20211126
  32. ENOXAPARIN [Concomitant]
     Active Substance: ENOXAPARIN
     Indication: Thrombosis prophylaxis
     Dosage: UNK (4000 UNSPECIFIED DOSE)
     Route: 058
     Dates: start: 20211026
  33. BISOPROLOL [Concomitant]
     Active Substance: BISOPROLOL\BISOPROLOL FUMARATE
     Indication: Prophylaxis
     Dosage: 2.5 MILLIGRAM
     Route: 065
     Dates: start: 20211026
  34. METFORMIN HYDROCHLORIDE [Concomitant]
     Active Substance: METFORMIN HYDROCHLORIDE
     Indication: Diabetes mellitus
     Dosage: 200 MILLIGRAM
     Route: 065
     Dates: start: 20211026
  35. INSULIN NOS [Concomitant]
     Active Substance: INSULIN NOS
     Indication: Diabetes mellitus
     Dosage: UNK
     Route: 065
     Dates: start: 20211026
  36. ACYCLOVIR [Concomitant]
     Active Substance: ACYCLOVIR
     Indication: Prophylaxis
     Dosage: 400 MILLIGRAM
     Route: 065
     Dates: start: 20211026

REACTIONS (1)
  - COVID-19 pneumonia [Recovered/Resolved]

NARRATIVE: CASE EVENT DATE: 20220113
